FAERS Safety Report 5639595-9 (Version None)
Quarter: 2008Q1

REPORT INFORMATION
  Report Type: 
  Country: None (occurrence: None)
  Receive Date: 20080222
  Receipt Date: 20080208
  Transmission Date: 20080703
  Serious: Yes (Hospitalization, Other)
  Sender: FDA-Public Use
  Company Number: 2008-00428

PATIENT
  Age: 59 Year
  Sex: Male
  Weight: 95.2 kg

DRUGS (3)
  1. VELCADE [Suspect]
     Indication: MULTIPLE MYELOMA
     Dates: start: 20040101
  2. INSULIN [Concomitant]
  3. REVLIMID [Concomitant]

REACTIONS (4)
  - BALANCE DISORDER [None]
  - NEURALGIA [None]
  - PAIN [None]
  - PAIN IN EXTREMITY [None]
